FAERS Safety Report 7761423-6 (Version None)
Quarter: 2011Q3

REPORT INFORMATION
  Report Type: 
  Country: None (occurrence: None)
  Receive Date: 20110920
  Receipt Date: 20110914
  Transmission Date: 20111222
  Serious: Yes (Death)
  Sender: FDA-Public Use
  Company Number: US-PERRIGO-11US005930

PATIENT
  Age: 37 Year
  Sex: Female

DRUGS (2)
  1. OXYMETAZOLINE HCL [Suspect]
     Indication: PRODUCT USED FOR UNKNOWN INDICATION
     Dosage: UNK, ONCE
     Route: 045
     Dates: start: 20110713, end: 20110713
  2. UNSPECIFIED MEDICATION [Concomitant]
     Indication: DISABILITY
     Dosage: UNK
     Route: 065

REACTIONS (4)
  - ADVERSE EVENT [None]
  - DIZZINESS [None]
  - HEADACHE [None]
  - VOMITING [None]
